FAERS Safety Report 23502811 (Version 1)
Quarter: 2024Q1

REPORT INFORMATION
  Report Type: Spontaneous
  Country: US (occurrence: US)
  Receive Date: 20240208
  Receipt Date: 20240208
  Transmission Date: 20240410
  Serious: No
  Sender: FDA-Public Use
  Company Number: US-INTRA-CELLULAR THERAPIES, INC.-2023ICT01081

PATIENT
  Age: 22 Year
  Sex: Female

DRUGS (6)
  1. CAPLYTA [Suspect]
     Active Substance: LUMATEPERONE
     Indication: Bipolar II disorder
     Dosage: UNK
  2. CAPLYTA [Suspect]
     Active Substance: LUMATEPERONE
     Indication: Bipolar disorder
  3. XANAX [Concomitant]
     Active Substance: ALPRAZOLAM
     Dosage: 1 MG, 1X/DAY
  4. HYDROXYZINE [Concomitant]
     Active Substance: HYDROXYZINE HYDROCHLORIDE
     Dosage: 30 MG, AS NEEDED
  5. TRAZODONE [Concomitant]
     Active Substance: TRAZODONE HYDROCHLORIDE
     Dosage: 150 MG, 1X/DAY
  6. MEMANTINE [Concomitant]
     Active Substance: MEMANTINE
     Dosage: 10 MG, 1X/DAY

REACTIONS (1)
  - Headache [Unknown]
